FAERS Safety Report 7771068-X (Version None)
Quarter: 2011Q3

REPORT INFORMATION
  Report Type: 
  Country: None (occurrence: None)
  Receive Date: 20110922
  Receipt Date: 20110531
  Transmission Date: 20111222
  Serious: Yes (Other)
  Sender: FDA-Public Use
  Company Number: US-ASTRAZENECA-2011SE33643

PATIENT
  Sex: Female

DRUGS (1)
  1. SEROQUEL [Suspect]
     Route: 048

REACTIONS (16)
  - BLADDER PROLAPSE [None]
  - SUICIDAL IDEATION [None]
  - ARTHRITIS [None]
  - DEPRESSION [None]
  - PANIC ATTACK [None]
  - SCHIZOPHRENIA [None]
  - EATING DISORDER [None]
  - FIBROMYALGIA [None]
  - MENTAL DISORDER [None]
  - ANXIETY [None]
  - BONE DISORDER [None]
  - DRUG DOSE OMISSION [None]
  - BIPOLAR DISORDER [None]
  - MIGRAINE [None]
  - INTERVERTEBRAL DISC PROTRUSION [None]
  - PAIN [None]
